FAERS Safety Report 13860216 (Version 1)
Quarter: 2017Q3

REPORT INFORMATION
  Report Type: Spontaneous
  Country: JP (occurrence: JP)
  Receive Date: 20170811
  Receipt Date: 20170811
  Transmission Date: 20171127
  Serious: Yes (Hospitalization)
  Sender: FDA-Public Use
  Company Number: JP-ABBVIE-17P-087-2047045-00

PATIENT
  Age: 40 Year
  Sex: Male

DRUGS (3)
  1. EMTRICITABINE / TENOFOVIR DISOPROXIL FUMARATE [Concomitant]
     Active Substance: EMTRICITABINE\TENOFOVIR DISOPROXIL FUMARATE
     Indication: HIV INFECTION
  2. NORVIR [Suspect]
     Active Substance: RITONAVIR
     Indication: HIV INFECTION
     Route: 048
  3. FOSAMPRENAVIR CALCIUM HYDRATE [Concomitant]
     Indication: HIV INFECTION

REACTIONS (1)
  - Orthopaedic procedure [Unknown]
